FAERS Safety Report 5493854-1 (Version None)
Quarter: 2007Q4

REPORT INFORMATION
  Report Type: 
  Country: None (occurrence: None)
  Receive Date: 20071019
  Receipt Date: 20071004
  Transmission Date: 20080405
  Serious: Yes (Death, Other)
  Sender: FDA-Public Use
  Company Number: A-NJ2007-17657

PATIENT
  Age: 40 Year
  Sex: Female
  Weight: 117 kg

DRUGS (4)
  1. TRACLEER [Suspect]
     Indication: PULMONARY HYPERTENSION
     Dosage: 125 MG, BID; ORAL, 62.5 MG, BID; ORAL, 125 MG, OD; ORAL,
     Route: 048
     Dates: start: 20070701, end: 20070801
  2. TRACLEER [Suspect]
     Indication: PULMONARY HYPERTENSION
     Dosage: 125 MG, BID; ORAL, 62.5 MG, BID; ORAL, 125 MG, OD; ORAL,
     Route: 048
     Dates: start: 20070801, end: 20070901
  3. TRACLEER [Suspect]
     Indication: PULMONARY HYPERTENSION
     Dosage: 125 MG, BID; ORAL, 62.5 MG, BID; ORAL, 125 MG, OD; ORAL,
     Route: 048
     Dates: start: 20070901, end: 20070918
  4. ;ASIX (FUROSEMIDE SODIUM) [Concomitant]

REACTIONS (4)
  - ACUTE RESPIRATORY DISTRESS SYNDROME [None]
  - CARDIAC FAILURE CONGESTIVE [None]
  - RASH [None]
  - RESPIRATORY FAILURE [None]
